FAERS Safety Report 4336328-3 (Version None)
Quarter: 2004Q2

REPORT INFORMATION
  Report Type: 
  Country: None (occurrence: None)
  Receive Date: 20040409
  Receipt Date: 20040409
  Transmission Date: 20050107
  Serious: Yes (Life-Threatening)
  Sender: FDA-Public Use
  Company Number: None

PATIENT
  Age: 12 Year
  Sex: Female
  Weight: 56 kg

DRUGS (6)
  1. RITUXIMAB [Suspect]
     Indication: ACUTE LYMPHOCYTIC LEUKAEMIA
     Dosage: 375MG/M2 = 565 MG IV SLOWLY, ESCL. RATE
     Route: 042
     Dates: start: 20040306
  2. KYTRIL [Concomitant]
  3. SOLU-MEDROL [Concomitant]
  4. BENADRYL [Concomitant]
  5. PREDNISONE TAB [Concomitant]
  6. PLATELET TRANSFUSIONS [Concomitant]

REACTIONS (6)
  - CEREBRAL HAEMORRHAGE [None]
  - DEPRESSED LEVEL OF CONSCIOUSNESS [None]
  - MYDRIASIS [None]
  - PULMONARY OEDEMA [None]
  - RESPIRATORY DISORDER [None]
  - THROMBOCYTOPENIA [None]
